FAERS Safety Report 15385116 (Version 1)
Quarter: 2018Q3

REPORT INFORMATION
  Report Type: Spontaneous
  Country: US (occurrence: US)
  Receive Date: 20180907
  Receipt Date: 20180907
  Transmission Date: 20181010
  Serious: Yes (Other)
  Sender: FDA-Public Use
  Company Number: None

PATIENT
  Age: 35 Year
  Sex: Female
  Weight: 69.75 kg

DRUGS (2)
  1. MONISTAT 1 COMBINATION PACK [Suspect]
     Active Substance: MICONAZOLE NITRATE
     Indication: VULVOVAGINAL MYCOTIC INFECTION
     Dosage: ?          QUANTITY:1 SUPPOSITORY(IES);?
     Route: 067
     Dates: start: 20180821, end: 20180821
  2. BIRTH CONTROL (TRISPRINTEC) [Concomitant]

REACTIONS (7)
  - Hypersensitivity [None]
  - Vulvovaginal pain [None]
  - Application site burn [None]
  - Impaired work ability [None]
  - Vulvovaginal swelling [None]
  - Gait inability [None]
  - Condition aggravated [None]

NARRATIVE: CASE EVENT DATE: 20180821
